FAERS Safety Report 6030583-X (Version None)
Quarter: 2009Q1

REPORT INFORMATION
  Report Type: 
  Country: None (occurrence: None)
  Receive Date: 20090106
  Receipt Date: 20090106
  Transmission Date: 20090719
  Serious: Yes (Other)
  Sender: FDA-Public Use
  Company Number: None

PATIENT
  Sex: Male
  Weight: 77.1115 kg

DRUGS (2)
  1. LEVAQUIN [Suspect]
     Indication: PROSTATIC DISORDER
     Dosage: ONE TAB ONE PER DAY PO
     Route: 048
     Dates: start: 20080324, end: 20080423
  2. LEVAQUIN [Suspect]
     Indication: PROSTATIC DISORDER
     Dosage: ONE TAB ONE PER DAY PO
     Route: 048
     Dates: start: 20080924, end: 20081024

REACTIONS (3)
  - GAIT DISTURBANCE [None]
  - LIGAMENT RUPTURE [None]
  - PAIN [None]
